FAERS Safety Report 4490223-8 (Version None)
Quarter: 2004Q4

REPORT INFORMATION
  Report Type: 
  Country: None (occurrence: None)
  Receive Date: 20041027
  Receipt Date: 20041016
  Transmission Date: 20050328
  Serious: Yes (Other)
  Sender: FDA-Public Use
  Company Number: 800159

PATIENT
  Age: 62 Year
  Sex: Male
  Weight: 54 kg

DRUGS (10)
  1. EXTRANEAL [Suspect]
     Indication: PERITONEAL DIALYSIS
     Dosage: 1.5 L; QD; INTRAPERITONEAL
     Route: 033
     Dates: start: 20040225, end: 20040309
  2. NOVORAPID (INSULIN ASPART) [Suspect]
     Indication: HYPERGLYCAEMIA
     Dosage: 192 UNITS; CONTINUOUS; SUBCUTANEOUS
     Route: 058
     Dates: start: 20031222
  3. BASEN (VOGLIBOSE) [Suspect]
     Indication: HYPERGLYCAEMIA
     Dosage: 0.9 MG; QD; ORAL
     Route: 048
     Dates: start: 20031222
  4. DIANEAL [Concomitant]
  5. CARDENALIN [Concomitant]
  6. NIFEDIPINE [Concomitant]
  7. SENNOSIDE A+B [Concomitant]
  8. CALCIUM CARBONATE [Concomitant]
  9. LASIX /SCH/ [Concomitant]
  10. FLUITRAN [Concomitant]

REACTIONS (5)
  - BLOOD GLUCOSE DECREASED [None]
  - BLOOD GLUCOSE INCREASED [None]
  - DEPRESSED LEVEL OF CONSCIOUSNESS [None]
  - DEVICE INTERACTION [None]
  - LABORATORY TEST INTERFERENCE [None]
